FAERS Safety Report 8951597 (Version 5)
Quarter: 2013Q3

REPORT INFORMATION
  Report Type: Spontaneous
  Country: US (occurrence: US)
  Receive Date: 20121204
  Receipt Date: 20130904
  Transmission Date: 20140515
  Serious: Yes (Hospitalization, Disabling, Other)
  Sender: FDA-Public Use
  Company Number: US-009507513-1211USA012346

PATIENT
  Sex: Female
  Weight: 52.61 kg

DRUGS (11)
  1. FOSAMAX [Suspect]
     Indication: OSTEOPENIA
     Dosage: 70 MG, UNK
     Route: 048
     Dates: end: 2007
  2. FOSAMAX [Suspect]
     Indication: OSTEOPOROSIS
     Dosage: 10 MG, QD
     Route: 048
     Dates: start: 19990923
  3. LEVOTHYROXINE SODIUM [Concomitant]
     Indication: HYPOTHYROIDISM
     Dosage: 88 MICROGRAM, QD
     Route: 048
     Dates: start: 1990
  4. PREMPRO [Concomitant]
     Indication: MENOPAUSE
     Dosage: 0.625/2.5 MG
     Dates: start: 19980710
  5. LEVOXYL [Concomitant]
     Indication: HYPOTHYROIDISM
     Dosage: 0.1 MG, QD
     Dates: start: 19980827
  6. NAPRELAN [Concomitant]
     Indication: TENDONITIS
     Dosage: 500 MG, BID
     Dates: start: 19980814
  7. NAPRELAN [Concomitant]
     Indication: BACK PAIN
  8. CLARINEX (DESLORATADINE) [Concomitant]
     Indication: HYPERSENSITIVITY
     Dosage: HS
     Dates: start: 20050721
  9. CALCIUM (UNSPECIFIED) (+) VITAMIN D (UNSPECIFIED) [Concomitant]
     Indication: OSTEOPOROSIS
  10. SODIUM CHLORIDE [Concomitant]
     Indication: HYPERSENSITIVITY
     Dosage: UNK
     Dates: start: 20050721
  11. BONIVA [Concomitant]
     Indication: OSTEOPOROSIS

REACTIONS (33)
  - Femur fracture [Unknown]
  - Intramedullary rod insertion [Unknown]
  - Humerus fracture [Unknown]
  - Femur fracture [Not Recovered/Not Resolved]
  - Osteoporosis [Not Recovered/Not Resolved]
  - Stress fracture [Unknown]
  - Stress fracture [Not Recovered/Not Resolved]
  - Low turnover osteopathy [Not Recovered/Not Resolved]
  - Hypoacusis [Unknown]
  - Metastatic neoplasm [Unknown]
  - Metastatic neoplasm [Unknown]
  - Chondrosarcoma [Unknown]
  - Femur fracture [Not Recovered/Not Resolved]
  - Adverse event [Unknown]
  - Vulvovaginal mycotic infection [Unknown]
  - Dyspnoea exertional [Unknown]
  - Pulmonary mass [Unknown]
  - Osteoma [Unknown]
  - Rib fracture [Unknown]
  - Skeletal injury [Unknown]
  - Osteoarthritis [Unknown]
  - Injury [Unknown]
  - Osteoarthritis [Unknown]
  - Benign bone neoplasm [Unknown]
  - Fall [Unknown]
  - Chondropathy [Unknown]
  - Enchondroma [Unknown]
  - Body height decreased [Unknown]
  - Local swelling [Unknown]
  - Abdominal pain [Unknown]
  - Back pain [Not Recovered/Not Resolved]
  - Pain in extremity [Unknown]
  - Drug ineffective [Unknown]
